FAERS Safety Report 7357944-0 (Version None)
Quarter: 2011Q1

REPORT INFORMATION
  Report Type: 
  Country: None (occurrence: None)
  Receive Date: 20110317
  Receipt Date: 20110221
  Transmission Date: 20110831
  Serious: No
  Sender: FDA-Public Use
  Company Number: US-B.I. PHARMACEUTICALS,INC./RIDGEFIELD-2011-BP-02027BP

PATIENT
  Age: 86 Year
  Sex: Female

DRUGS (9)
  1. DULCOLAX [Suspect]
     Indication: CONSTIPATION
     Dosage: 200 MG
     Route: 048
     Dates: start: 20110112, end: 20110112
  2. MULTIVITAMIN [Concomitant]
  3. METOPROLOL [Concomitant]
     Indication: HYPERTENSION
     Dosage: 200 MG
     Route: 048
  4. ALPRAZOLAM [Concomitant]
     Indication: ANXIETY
  5. ENALAPRIL [Concomitant]
     Indication: HYPERTENSION
     Dosage: 30 MG
     Route: 048
  6. PRADAXA [Suspect]
     Indication: ATRIAL FIBRILLATION
     Dosage: 300 MG
     Route: 048
     Dates: start: 20110112
  7. ASPIRIN [Concomitant]
     Indication: ATRIAL FIBRILLATION
  8. TYLENOL-500 [Concomitant]
     Indication: PAIN
  9. DIGOXIN [Concomitant]
     Indication: ATRIAL FIBRILLATION

REACTIONS (3)
  - RECTAL HAEMORRHAGE [None]
  - FATIGUE [None]
  - ARTHRALGIA [None]
